FAERS Safety Report 5456774-4 (Version None)
Quarter: 2007Q3

REPORT INFORMATION
  Report Type: 
  Country: None (occurrence: None)
  Receive Date: 20070918
  Receipt Date: 20070430
  Transmission Date: 20080115
  Serious: Yes (Other)
  Sender: FDA-Public Use
  Company Number: US-ASTRAZENECA-2006UW26377

PATIENT
  Age: 28 Year
  Sex: Male
  Weight: 59.1 kg

DRUGS (3)
  1. SEROQUEL [Suspect]
     Indication: SCHIZOPHRENIA
     Dosage: 50 MG TO 100 MG
     Route: 048
     Dates: start: 20050101, end: 20060101
  2. SEROQUEL [Suspect]
     Indication: BIPOLAR I DISORDER
     Dosage: 50 MG TO 100 MG
     Route: 048
     Dates: start: 20050101, end: 20060101
  3. SEROQUEL [Suspect]
     Indication: ANXIETY
     Dosage: 50 MG TO 100 MG
     Route: 048
     Dates: start: 20050101, end: 20060101

REACTIONS (1)
  - DIABETIC KETOACIDOSIS [None]
